FAERS Safety Report 18040331 (Version 3)
Quarter: 2021Q1

REPORT INFORMATION
  Report Type: Spontaneous
  Country: CA (occurrence: CA)
  Receive Date: 20200717
  Receipt Date: 20210322
  Transmission Date: 20210419
  Serious: Yes (Other)
  Sender: FDA-Public Use
  Company Number: CA-PFIZER INC-2020271341

PATIENT
  Age: 57 Year
  Sex: Female

DRUGS (10)
  1. CYANOCOBALAMIN. [Concomitant]
     Active Substance: CYANOCOBALAMIN
     Dosage: 1000 UG (ONE TO TWO WEEKS PRIOR TO FIRST CYCLE OF PEMETREXED AND SUBSEQUENTLY INJECTED)
     Route: 030
  2. PEMETREXED. [Suspect]
     Active Substance: PEMETREXED
     Indication: COLON CANCER STAGE III
     Dosage: 900 MG/M2, CYCLIC, (21?DAY CYCLES)
     Route: 042
  3. DEXAMETHASONE. [Concomitant]
     Active Substance: DEXAMETHASONE
     Dosage: 4 MG, CYCLIC
     Route: 048
  4. ONDANSETRON [Concomitant]
     Active Substance: ONDANSETRON
     Dosage: 8 MG, CYCLIC (THE DAY OF CHEMOTHERAPY WITH ONE TABLET TAKEN ORALLY 30?60 MIN PRIOR TO CHEMOTHERAPY)
     Route: 048
  5. OXALIPLATIN. [Suspect]
     Active Substance: OXALIPLATIN
     Indication: COLON CANCER STAGE III
     Dosage: 130 MG/M2, CYCLIC, (21?DAY CYCLE)
  6. OXALIPLATIN. [Suspect]
     Active Substance: OXALIPLATIN
     Dosage: 110.5 MG/M2, CYCLIC (21?DAY CYCLE; DOSE REDUCTION)
  7. CYANOCOBALAMIN. [Concomitant]
     Active Substance: CYANOCOBALAMIN
     Dosage: 1000 UG (ONE TO TWO WEEKS PRIOR TO FIRST CYCLE OF PEMETREXED AND SUBSEQUENTLY INJECTED)
     Route: 030
  8. METOCLOPRAMIDE. [Concomitant]
     Active Substance: METOCLOPRAMIDE
     Indication: NAUSEA
     Dosage: 10 MG, AS NEEDED (EVERY 4 H)
     Route: 048
  9. METOCLOPRAMIDE. [Concomitant]
     Active Substance: METOCLOPRAMIDE
     Indication: VOMITING
  10. FOLIC ACID. [Concomitant]
     Active Substance: FOLIC ACID
     Dosage: 400 UG, 1X/DAY
     Route: 048

REACTIONS (3)
  - Neutrophil count decreased [Unknown]
  - Neuropathy peripheral [Unknown]
  - Toxicity to various agents [Unknown]
